FAERS Safety Report 5100434-6 (Version None)
Quarter: 2006Q3

REPORT INFORMATION
  Report Type: 
  Country: None (occurrence: None)
  Receive Date: 20060731
  Receipt Date: 20060629
  Transmission Date: 20061208
  Serious: No
  Sender: FDA-Public Use
  Company Number: 2006PV016120

PATIENT
  Sex: Male

DRUGS (9)
  1. BYETTA [Suspect]
     Indication: DRUG USE FOR UNKNOWN INDICATION
     Dosage: 5 MCG SC
     Route: 058
     Dates: start: 20060201, end: 20060101
  2. ACTOS [Concomitant]
  3. ASPIRIN [Concomitant]
  4. FORTAMET [Concomitant]
  5. LANTUS [Concomitant]
  6. LISINOPRIL [Concomitant]
  7. VITAMINS [Concomitant]
  8. ZOCOR [Concomitant]
  9. ZOLOFT [Concomitant]

REACTIONS (3)
  - AGGRESSION [None]
  - AGITATION [None]
  - ANGER [None]
